FAERS Safety Report 8559677-1 (Version None)
Quarter: 2012Q3

REPORT INFORMATION
  Report Type: 
  Country: None (occurrence: None)
  Receive Date: 20120802
  Receipt Date: 20120725
  Transmission Date: 20120928
  Serious: Yes (Other)
  Sender: FDA-Public Use
  Company Number: US-ASTELLAS-2011US008635

PATIENT
  Sex: Male

DRUGS (3)
  1. VESICARE [Suspect]
     Indication: HYPERTONIC BLADDER
     Dosage: 5 MG, UID/QD
     Route: 048
     Dates: start: 20111024, end: 20111107
  2. VESICARE [Suspect]
     Indication: URGE INCONTINENCE
  3. VESICARE [Suspect]
     Indication: MICTURITION URGENCY

REACTIONS (4)
  - VISUAL FIELD DEFECT [None]
  - DIPLOPIA [None]
  - CONSTIPATION [None]
  - IMPAIRED DRIVING ABILITY [None]
